FAERS Safety Report 24837229 (Version 2)
Quarter: 2025Q1

REPORT INFORMATION
  Report Type: Spontaneous
  Country: BE (occurrence: BE)
  Receive Date: 20250113
  Receipt Date: 20250122
  Transmission Date: 20250408
  Serious: Yes (Life-Threatening, Hospitalization, Other)
  Sender: NOVARTIS
  Company Number: BE-002147023-NVSC2025BE004471

PATIENT
  Sex: Male

DRUGS (4)
  1. MIDOSTAURIN [Suspect]
     Active Substance: MIDOSTAURIN
     Indication: Product used for unknown indication
     Route: 065
     Dates: start: 20241126, end: 20241209
  2. HYDREA [Concomitant]
     Active Substance: HYDROXYUREA
     Indication: Product used for unknown indication
     Dosage: 1500 MG, BID
     Route: 065
  3. CYTARABINE [Concomitant]
     Active Substance: CYTARABINE
     Indication: Product used for unknown indication
     Route: 065
     Dates: start: 20241119
  4. DAUNORUBICIN [Concomitant]
     Active Substance: DAUNORUBICIN
     Indication: Product used for unknown indication
     Route: 065
     Dates: start: 20241119

REACTIONS (11)
  - Autoimmune disorder [Unknown]
  - Febrile neutropenia [Unknown]
  - Neutropenic colitis [Unknown]
  - Pneumonia [Unknown]
  - Engraftment syndrome [Unknown]
  - Hypophysitis [Unknown]
  - Polyneuropathy [Unknown]
  - Autoimmune myositis [Unknown]
  - Necrosis [Unknown]
  - Tachycardia [Unknown]
  - Quality of life decreased [Unknown]

NARRATIVE: CASE EVENT DATE: 20241129
